FAERS Safety Report 21458598 (Version 1)
Quarter: 2022Q4

REPORT INFORMATION
  Report Type: Spontaneous
  Country: FR (occurrence: FR)
  Receive Date: 20221014
  Receipt Date: 20221014
  Transmission Date: 20230113
  Serious: Yes (Congenital Anomaly, Other)
  Sender: FDA-Public Use
  Company Number: FR-MLMSERVICE-20221003-3832498-1

PATIENT
  Sex: Male
  Weight: 1.065 kg

DRUGS (4)
  1. BETAMETHASONE SODIUM PHOSPHATE [Suspect]
     Active Substance: BETAMETHASONE SODIUM PHOSPHATE
     Dosage: 12 MG IM/24 H TWICE
     Route: 064
  2. BETAMETHASONE SODIUM PHOSPHATE [Suspect]
     Active Substance: BETAMETHASONE SODIUM PHOSPHATE
     Dosage: 0.3 MG/KG/DAY
     Route: 042
  3. BETAMETHASONE SODIUM PHOSPHATE [Suspect]
     Active Substance: BETAMETHASONE SODIUM PHOSPHATE
     Dosage: 0.2 MG/KG/DAY
     Route: 042
  4. BETAMETHASONE SODIUM PHOSPHATE [Suspect]
     Active Substance: BETAMETHASONE SODIUM PHOSPHATE
     Dosage: 0.1 MG/KG/DAY
     Route: 042

REACTIONS (2)
  - Congenital hyperinsulinaemic hypoglycaemia [Recovered/Resolved]
  - Foetal exposure during pregnancy [Unknown]
